FAERS Safety Report 9925007 (Version 1)
Quarter: 2014Q1

REPORT INFORMATION
  Report Type: Spontaneous
  Country: BR (occurrence: BR)
  Receive Date: 20140226
  Receipt Date: 20140226
  Transmission Date: 20141002
  Serious: Yes (Other)
  Sender: FDA-Public Use
  Company Number: BR-ASTRAZENECA-2014SE11852

PATIENT
  Age: 55 Year
  Sex: Female
  Weight: 90 kg

DRUGS (5)
  1. BRILINTA [Suspect]
     Indication: MYOCARDIAL INFARCTION
     Route: 048
     Dates: start: 201310, end: 20140214
  2. ASA [Concomitant]
     Indication: MYOCARDIAL INFARCTION
     Dosage: DAILY
     Route: 048
     Dates: start: 201310
  3. LIPITOR [Concomitant]
     Indication: BLOOD CHOLESTEROL INCREASED
     Route: 048
  4. LOSARTAN [Concomitant]
     Indication: HYPERTENSION
     Dosage: DAILY
     Route: 048
  5. AMLODIPINE [Concomitant]
     Indication: HYPERTENSION
     Dosage: DAILY
     Route: 048

REACTIONS (4)
  - Anaemia [Not Recovered/Not Resolved]
  - Haematochezia [Recovered/Resolved]
  - Pain [Not Recovered/Not Resolved]
  - Haematoma [Not Recovered/Not Resolved]
